FAERS Safety Report 6331805-8 (Version None)
Quarter: 2009Q3

REPORT INFORMATION
  Report Type: 
  Country: None (occurrence: None)
  Receive Date: 20090826
  Receipt Date: 20090818
  Transmission Date: 20100115
  Serious: Yes (Hospitalization)
  Sender: FDA-Public Use
  Company Number: 2008JP000519

PATIENT
  Age: 41 Year
  Sex: Female
  Weight: 51 kg

DRUGS (12)
  1. TACROLIMUS [Suspect]
     Indication: LUPUS NEPHRITIS
     Dosage: 3 MG, ORAL
     Route: 048
     Dates: start: 20070521, end: 20081118
  2. PREDNISOLONE [Suspect]
     Indication: LUPUS NEPHRITIS
     Dosage: 10 MG, ORAL; 20 MG, ORAL; 15 MG, ORAL; 12.5 MG, ORAL; 12 MG, ORAL; 11 MG, ORAL
     Route: 048
     Dates: end: 20070905
  3. PREDNISOLONE [Suspect]
     Indication: LUPUS NEPHRITIS
     Dosage: 10 MG, ORAL; 20 MG, ORAL; 15 MG, ORAL; 12.5 MG, ORAL; 12 MG, ORAL; 11 MG, ORAL
     Route: 048
     Dates: start: 20070906, end: 20080518
  4. PREDNISOLONE [Suspect]
     Indication: LUPUS NEPHRITIS
     Dosage: 10 MG, ORAL; 20 MG, ORAL; 15 MG, ORAL; 12.5 MG, ORAL; 12 MG, ORAL; 11 MG, ORAL
     Route: 048
     Dates: start: 20080519, end: 20090325
  5. PREDNISOLONE [Suspect]
     Indication: LUPUS NEPHRITIS
     Dosage: 10 MG, ORAL; 20 MG, ORAL; 15 MG, ORAL; 12.5 MG, ORAL; 12 MG, ORAL; 11 MG, ORAL
     Route: 048
     Dates: start: 20090326
  6. NU-LOTAN (LOSARTAN POTASSIUM) PER ORAL NOS [Concomitant]
  7. GASTER (FAMOTIDINE) ORODISPERSIBLE CR TABLET, UNKNOWN [Concomitant]
  8. FERROMIA (FERROUS SODIUM CITRATE) PER ORAL NOS [Concomitant]
  9. BENET (RISEDRONATE SODIUM) PER ORAL NOS [Concomitant]
  10. BONALON (ALENDRONATE SODIUM) PER ORAL NOS [Concomitant]
  11. LASIX (FUROSEMIDE) PER ORAL NOS [Concomitant]
  12. ZYLORIC PER ORAL NOS [Concomitant]

REACTIONS (4)
  - IMMUNOSUPPRESSION [None]
  - OEDEMA [None]
  - PLEURISY [None]
  - PNEUMONIA [None]
